FAERS Safety Report 5538449-6 (Version None)
Quarter: 2007Q4

REPORT INFORMATION
  Report Type: 
  Country: None (occurrence: None)
  Receive Date: 20071205
  Receipt Date: 20071123
  Transmission Date: 20080405
  Serious: Yes (Hospitalization)
  Sender: FDA-Public Use
  Company Number: PAR_01804_2007

PATIENT
  Age: 33 Year
  Sex: Female

DRUGS (9)
  1. IBUPROFEN [Suspect]
     Indication: DRUG USE FOR UNKNOWN INDICATION
     Dosage: DF
  2. ACETAMINOPHEN [Suspect]
     Indication: DRUG USE FOR UNKNOWN INDICATION
     Dosage: DF
  3. AMITRIPTYLINE HCL [Suspect]
     Indication: DEPRESSION
     Dosage: DF, ORAL
     Route: 048
  4. AMIODARONE HCL [Concomitant]
  5. PHENYTOIN [Concomitant]
  6. EPINEPHRINE [Concomitant]
  7. CEFOTAXIME [Concomitant]
  8. HYDROCORTISONE [Concomitant]
  9. DIURETICS [Concomitant]

REACTIONS (14)
  - BACTERIA SPUTUM IDENTIFIED [None]
  - CARDIAC ARREST [None]
  - CONVULSION [None]
  - ELECTROMECHANICAL DISSOCIATION [None]
  - GENERAL PHYSICAL HEALTH DETERIORATION [None]
  - GRAND MAL CONVULSION [None]
  - HAEMOPHILUS INFECTION [None]
  - IATROGENIC INJURY [None]
  - LOSS OF CONSCIOUSNESS [None]
  - MULTIPLE DRUG OVERDOSE INTENTIONAL [None]
  - PNEUMOTHORAX [None]
  - STREPTOCOCCAL INFECTION [None]
  - TACHYCARDIA [None]
  - TACHYPNOEA [None]
